FAERS Safety Report 9098128 (Version 1)
Quarter: 2013Q1

REPORT INFORMATION
  Report Type: Spontaneous
  Country: PH (occurrence: PH)
  Receive Date: 20130213
  Receipt Date: 20130213
  Transmission Date: 20140127
  Serious: Yes (Death)
  Sender: FDA-Public Use
  Company Number: PHHY2013PH013769

PATIENT
  Age: 57 Year
  Sex: Male

DRUGS (3)
  1. GLIVEC [Suspect]
     Dosage: 400 MG, UNK
     Route: 048
     Dates: start: 20081118, end: 20091122
  2. GLIVEC [Suspect]
     Dosage: 600 MG, UNK
     Dates: start: 20091122, end: 20120427
  3. GLIVEC [Suspect]
     Dosage: 400 MG, UNK
     Dates: start: 20120427

REACTIONS (1)
  - Death [Fatal]
